FAERS Safety Report 18975965 (Version 3)
Quarter: 2024Q2

REPORT INFORMATION
  Report Type: Report from Study
  Country: US (occurrence: US)
  Receive Date: 20210305
  Receipt Date: 20240416
  Transmission Date: 20240715
  Serious: Yes (Other)
  Sender: FDA-Public Use
  Company Number: US-TEVA-2021-US-1886452

PATIENT
  Age: 52 Year
  Sex: Female

DRUGS (2)
  1. TREPROSTINIL [Suspect]
     Active Substance: TREPROSTINIL
     Indication: Pulmonary arterial hypertension
     Dosage: DOSAGE TEXT: 50 NG/KG/MIN CONTINUOUS INTRAVENOUS
     Route: 042
     Dates: start: 202007
  2. OPSUMIT [Concomitant]
     Active Substance: MACITENTAN

REACTIONS (5)
  - Vascular device infection [Unknown]
  - Injection site swelling [Unknown]
  - Injection site pain [Unknown]
  - Injection site pain [Unknown]
  - Localised infection [Unknown]

NARRATIVE: CASE EVENT DATE: 20240301
